FAERS Safety Report 17067702 (Version 1)
Quarter: 2019Q4

REPORT INFORMATION
  Report Type: Spontaneous
  Country: US (occurrence: US)
  Receive Date: 20191122
  Receipt Date: 20191122
  Transmission Date: 20200122
  Serious: No
  Sender: FDA-Public Use
  Company Number: US-BIODELIVERY SCIENCES INTERNATIONAL-2019BDSI0164

PATIENT
  Age: 52 Year
  Sex: Female
  Weight: 61.29 kg

DRUGS (6)
  1. BUPRENORPHINE. [Suspect]
     Active Substance: BUPRENORPHINE
     Route: 002
     Dates: start: 20190215
  2. BUPRENORPHINE. [Suspect]
     Active Substance: BUPRENORPHINE
     Indication: PAIN
     Route: 002
     Dates: start: 20190207, end: 20190214
  3. ERGOCALCIFEROL/ASCORBIC ACID/PYRIDOXINE HYDROCHLORIDE/THIAMINE HYDROCHLORIDE/RETINOL/RIBOFLAVIN/NICO [Concomitant]
     Active Substance: VITAMINS
     Indication: VITAMIN SUPPLEMENTATION
     Dosage: UNKNOWN; UNKNOWN
  4. MORPHINE SULFATE. [Concomitant]
     Active Substance: MORPHINE SULFATE
     Indication: PAIN
  5. NO DRUG NAME [Concomitant]
     Active Substance: UNSPECIFIED INGREDIENT
     Indication: HORMONE REPLACEMENT THERAPY
     Dosage: ESTROGEN AND TESTOSTERONE, UNKNOWN
  6. LEVOTHYROXINE. [Concomitant]
     Active Substance: LEVOTHYROXINE
     Indication: HYPERTHYROIDISM
     Route: 048

REACTIONS (9)
  - Wrong technique in product usage process [Recovered/Resolved]
  - Drug ineffective [Not Recovered/Not Resolved]
  - Product adhesion issue [Unknown]
  - Poor quality sleep [Not Recovered/Not Resolved]
  - Somnolence [Not Recovered/Not Resolved]
  - Diarrhoea [Not Recovered/Not Resolved]
  - Pain [Not Recovered/Not Resolved]
  - Headache [Recovering/Resolving]
  - Anger [Not Recovered/Not Resolved]

NARRATIVE: CASE EVENT DATE: 201902
